FAERS Safety Report 23924713 (Version 1)
Quarter: 2024Q2

REPORT INFORMATION
  Report Type: Other
  Country: IT (occurrence: IT)
  Receive Date: 20240531
  Receipt Date: 20240531
  Transmission Date: 20240716
  Serious: Yes (Other)
  Sender: FDA-Public Use
  Company Number: IT-B.Braun Medical Inc.-2157633

PATIENT
  Age: 81 Year
  Sex: Female

DRUGS (3)
  1. SODIUM CHLORIDE [Suspect]
     Active Substance: SODIUM CHLORIDE
     Indication: Hyponatraemia
  2. PERINDOPRIL [Concomitant]
     Active Substance: PERINDOPRIL
  3. BISOPROLOL. [Concomitant]
     Active Substance: BISOPROLOL FUMARATE

REACTIONS (1)
  - Osmotic demyelination syndrome [Recovered/Resolved]
